FAERS Safety Report 7265125-4 (Version None)
Quarter: 2011Q1

REPORT INFORMATION
  Report Type: 
  Country: None (occurrence: None)
  Receive Date: 20110131
  Receipt Date: 20110128
  Transmission Date: 20110831
  Serious: Yes (Hospitalization)
  Sender: FDA-Public Use
  Company Number: DE-SANOFI-AVENTIS-2011SA005559

PATIENT
  Age: 62 Year
  Sex: Female
  Weight: 56 kg

DRUGS (4)
  1. GRANISETRON HCL [Concomitant]
     Indication: PROPHYLAXIS
     Route: 042
     Dates: start: 20101015, end: 20101015
  2. DOCETAXEL [Suspect]
     Indication: BREAST CANCER
     Route: 041
     Dates: start: 20101015, end: 20101015
  3. DOCETAXEL [Suspect]
     Route: 041
  4. DEXAMETHASONE [Concomitant]
     Indication: PROPHYLAXIS
     Route: 042
     Dates: start: 20101015, end: 20101015

REACTIONS (1)
  - DEPRESSION [None]
